FAERS Safety Report 7342660-1 (Version None)
Quarter: 2011Q1

REPORT INFORMATION
  Report Type: 
  Country: None (occurrence: None)
  Receive Date: 20110310
  Receipt Date: 20100916
  Transmission Date: 20110831
  Serious: Yes (Hospitalization, Other)
  Sender: FDA-Public Use
  Company Number: US-BAYER-201012026NA

PATIENT
  Sex: Female
  Weight: 72.562 kg

DRUGS (16)
  1. METROGEL [Concomitant]
     Dates: start: 20030101
  2. NASACORT [Concomitant]
     Dosage: UNK
     Route: 045
     Dates: start: 20040524
  3. YASMIN [Suspect]
     Dosage: UNK
     Dates: start: 20041112, end: 20041231
  4. ASCORBIC ACID [Concomitant]
  5. ASPIRIN [Concomitant]
     Dosage: 81 MG, QD
     Route: 048
     Dates: start: 20040524
  6. OCELLA [Suspect]
     Indication: PRODUCT USED FOR UNKNOWN INDICATION
  7. ALEVE [Concomitant]
  8. YASMIN [Suspect]
     Indication: CONTRACEPTION
     Dosage: UNK
     Dates: start: 20010620
  9. YAZ [Suspect]
     Indication: PRODUCT USED FOR UNKNOWN INDICATION
  10. BIAXIN [Concomitant]
  11. DETROL [Concomitant]
  12. DETROL LA [Concomitant]
     Indication: STRESS URINARY INCONTINENCE
     Dosage: 2 MG (DAILY DOSE), ,
  13. PEPTO-BISMOL [Concomitant]
     Indication: HELICOBACTER GASTRITIS
  14. ZOLOFT [Concomitant]
     Indication: PREMENSTRUAL SYNDROME
     Dosage: 81 MG, UNK
     Route: 048
     Dates: start: 20040524
  15. YASMIN [Suspect]
     Dosage: UNK
     Dates: start: 20040429
  16. ADVIL [Concomitant]

REACTIONS (9)
  - EPIGASTRIC DISCOMFORT [None]
  - ABDOMINAL DISTENSION [None]
  - MUSCULOSKELETAL PAIN [None]
  - ABDOMINAL PAIN LOWER [None]
  - DYSPEPSIA [None]
  - CHEST PAIN [None]
  - FOOD INTOLERANCE [None]
  - ABDOMINAL PAIN UPPER [None]
  - CHOLECYSTITIS CHRONIC [None]
